FAERS Safety Report 23781237 (Version 3)
Quarter: 2024Q3

REPORT INFORMATION
  Report Type: Spontaneous
  Country: US (occurrence: US)
  Receive Date: 20240425
  Receipt Date: 20240902
  Transmission Date: 20241016
  Serious: Yes (Hospitalization)
  Sender: BRISTOL MYERS SQUIBB
  Company Number: US-BRISTOL-MYERS SQUIBB COMPANY-2024-059984

PATIENT
  Age: 79 Year
  Sex: Male
  Weight: 89.81 kg

DRUGS (1)
  1. POMALYST [Suspect]
     Active Substance: POMALIDOMIDE
     Indication: Plasma cell myeloma
     Dosage: 1 CAPSULE ONCE DAILY 21 DAYS ON 7 DAYS OFF
     Route: 048
     Dates: start: 20240116, end: 20240330

REACTIONS (3)
  - Respiratory syncytial virus infection [Recovering/Resolving]
  - Fatigue [Unknown]
  - Skin exfoliation [Recovering/Resolving]

NARRATIVE: CASE EVENT DATE: 20240330
